FAERS Safety Report 18122294 (Version 2)
Quarter: 2020Q3

REPORT INFORMATION
  Report Type: Spontaneous
  Country: CA (occurrence: CA)
  Receive Date: 20200807
  Receipt Date: 20200810
  Transmission Date: 20201103
  Serious: Yes (Other)
  Sender: FDA-Public Use
  Company Number: CA-ORION CORPORATION ORION PHARMA-20_00010206

PATIENT
  Age: 79 Year
  Sex: Male

DRUGS (2)
  1. METHOTREXATE (TRADE NAME UNKNOWN) [Suspect]
     Active Substance: METHOTREXATE
     Indication: PRODUCT USED FOR UNKNOWN INDICATION
     Route: 058
  2. TOFACITINIB [Concomitant]
     Active Substance: TOFACITINIB
     Route: 065

REACTIONS (4)
  - Thrombocytopenia [Unknown]
  - Macrocytosis [Unknown]
  - Lymphadenopathy [Unknown]
  - Drug intolerance [Unknown]
